FAERS Safety Report 13671907 (Version 7)
Quarter: 2018Q1

REPORT INFORMATION
  Report Type: Spontaneous
  Country: JP (occurrence: JP)
  Receive Date: 20170621
  Receipt Date: 20180220
  Transmission Date: 20180508
  Serious: Yes (Hospitalization, Other)
  Sender: FDA-Public Use
  Company Number: JP-009507513-1706JPN001636J

PATIENT
  Age: 66 Year
  Sex: Female
  Weight: 47 kg

DRUGS (8)
  1. NEXIUM [Concomitant]
     Active Substance: ESOMEPRAZOLE MAGNESIUM
     Indication: PROPHYLAXIS
     Dosage: 20.0 MG, QD
     Route: 048
  2. PREDONINE [Concomitant]
     Active Substance: PREDNISOLONE
     Indication: SQUAMOUS CELL CARCINOMA OF LUNG
     Dosage: 10.0 MG, QD
     Route: 048
     Dates: end: 20170607
  3. DENOTAS [Concomitant]
     Active Substance: CALCIUM CARBONATE\CHOLECALCIFEROL\MAGNESIUM CARBONATE
     Indication: PROPHYLAXIS
     Dosage: 1 DF, BID
     Route: 048
  4. CODEINE PHOSPHATE HYDRATE [Concomitant]
     Active Substance: CODEINE PHOSPHATE
     Indication: SQUAMOUS CELL CARCINOMA OF LUNG
     Dosage: 20.0 MG, QID
     Route: 048
  5. RANMARK [Concomitant]
     Active Substance: DENOSUMAB
     Indication: SQUAMOUS CELL CARCINOMA OF LUNG
     Dosage: 1 DF, QM
     Route: 051
  6. KEYTRUDA [Suspect]
     Active Substance: PEMBROLIZUMAB
     Indication: SQUAMOUS CELL CARCINOMA OF LUNG
     Dosage: 200 MG, Q3W
     Route: 041
     Dates: start: 20170501, end: 20170705
  7. MAGNESIUM OXIDE KENEI [Concomitant]
     Indication: PROPHYLAXIS
     Dosage: 330.0 MG, QID
     Route: 048
  8. NAIXAN [Concomitant]
     Active Substance: NAPROXEN SODIUM
     Indication: SQUAMOUS CELL CARCINOMA OF LUNG
     Dosage: 100.0 MG, TID
     Route: 048
     Dates: end: 20170607

REACTIONS (1)
  - Infectious pleural effusion [Recovered/Resolved]

NARRATIVE: CASE EVENT DATE: 20170524
